FAERS Safety Report 5657134-3 (Version None)
Quarter: 2008Q1

REPORT INFORMATION
  Report Type: 
  Country: None (occurrence: None)
  Receive Date: 20080310
  Receipt Date: 20080225
  Transmission Date: 20080703
  Serious: Yes (Hospitalization)
  Sender: FDA-Public Use
  Company Number: US-AMGEN-US264640

PATIENT
  Sex: Female

DRUGS (12)
  1. PANITUMUMAB [Suspect]
     Indication: COLORECTAL CANCER
     Route: 042
     Dates: start: 20071029
  2. FLUOROURACIL [Suspect]
     Route: 042
     Dates: start: 20071029
  3. FLUOROURACIL [Suspect]
     Route: 042
     Dates: start: 20071029
  4. IRINOTECAN [Concomitant]
     Route: 042
     Dates: start: 20071029
  5. LEUCOVORIN CALCIUM [Concomitant]
     Route: 042
  6. LYRICA [Concomitant]
     Route: 048
     Dates: end: 20080211
  7. VICODIN [Concomitant]
     Route: 048
     Dates: end: 20080211
  8. IMODIUM [Concomitant]
     Route: 048
     Dates: end: 20080211
  9. COMPAZINE [Concomitant]
     Route: 048
     Dates: end: 20080211
  10. ATIVAN [Concomitant]
     Route: 048
  11. COUMADIN [Concomitant]
     Route: 048
  12. COUMADIN [Concomitant]
     Route: 048

REACTIONS (1)
  - PYREXIA [None]
